FAERS Safety Report 12667834 (Version 1)
Quarter: 2016Q3

REPORT INFORMATION
  Report Type: Report from Study
  Country: US (occurrence: US)
  Receive Date: 20160819
  Receipt Date: 20160819
  Transmission Date: 20161109
  Serious: Yes (Other)
  Sender: FDA-Public Use
  Company Number: US-TEVA-684116USA

PATIENT
  Age: 55 Year
  Sex: Male

DRUGS (1)
  1. COPAXONE [Suspect]
     Active Substance: GLATIRAMER ACETATE
     Indication: MULTIPLE SCLEROSIS
     Route: 058
     Dates: start: 20150801, end: 20150801

REACTIONS (4)
  - Urticaria [Unknown]
  - Body temperature increased [Unknown]
  - Blister [Unknown]
  - Throat tightness [Unknown]

NARRATIVE: CASE EVENT DATE: 20150801
